FAERS Safety Report 10073056 (Version 1)
Quarter: 2014Q2

REPORT INFORMATION
  Report Type: Spontaneous
  Country: US (occurrence: US)
  Receive Date: 20140411
  Receipt Date: 20140411
  Transmission Date: 20141212
  Serious: No
  Sender: FDA-Public Use
  Company Number: US-009507513-1404USA005656

PATIENT
  Sex: Female

DRUGS (1)
  1. IMPLANON [Suspect]
     Dosage: 1 ROD/ EVERY THREE YEARS
     Route: 059
     Dates: start: 201104

REACTIONS (2)
  - Device difficult to use [Unknown]
  - Medical device complication [Unknown]
